FAERS Safety Report 11706490 (Version 1)
Quarter: 2015Q4

REPORT INFORMATION
  Report Type: Spontaneous
  Country: US (occurrence: US)
  Receive Date: 20151106
  Receipt Date: 20151106
  Transmission Date: 20160304
  Serious: Yes (Hospitalization, Other)
  Sender: FDA-Public Use
  Company Number: US-FRI-1000080774

PATIENT
  Sex: Female

DRUGS (1)
  1. ARMOUR THYROID [Suspect]
     Active Substance: THYROID, PORCINE\THYROID, UNSPECIFIED

REACTIONS (4)
  - Apparent death [Unknown]
  - Metabolic acidosis [Unknown]
  - Thyrotoxic crisis [Unknown]
  - Toxic shock syndrome [Unknown]

NARRATIVE: CASE EVENT DATE: 2007
